FAERS Safety Report 7887892-9 (Version None)
Quarter: 2011Q4

REPORT INFORMATION
  Report Type: 
  Country: None (occurrence: None)
  Receive Date: 20111103
  Receipt Date: 20111103
  Transmission Date: 20120403
  Serious: No
  Sender: FDA-Public Use
  Company Number: None

PATIENT
  Age: 62 Year
  Sex: Female
  Weight: 59.874 kg

DRUGS (1)
  1. CHANTIX [Suspect]
     Indication: SMOKING CESSATION THERAPY
     Dosage: ONE BY MOUTH
     Route: 048
     Dates: start: 20080102, end: 20080116

REACTIONS (4)
  - VISUAL IMPAIRMENT [None]
  - PHOTOPSIA [None]
  - MIGRAINE WITH AURA [None]
  - RETINAL VEIN OCCLUSION [None]
